FAERS Safety Report 9326096 (Version 1)
Quarter: 2013Q2

REPORT INFORMATION
  Report Type: Spontaneous
  Country: US (occurrence: None)
  Receive Date: 20130603
  Receipt Date: 20130603
  Transmission Date: 20140414
  Serious: No
  Sender: FDA-Public Use
  Company Number: None

PATIENT
  Age: 66 Year
  Sex: Female

DRUGS (10)
  1. GLEEVEC [Suspect]
     Dosage: 400MG QD PO
     Route: 048
     Dates: start: 201305
  2. SIMVASTATIN [Concomitant]
  3. LEVOTHYROXINE [Concomitant]
  4. CALCIUM [Concomitant]
  5. OSTEOBIFLEX [Concomitant]
  6. MEGA RED FISH OIL [Concomitant]
  7. ASPIRIN [Concomitant]
  8. COD LIVER OIL [Concomitant]
  9. CO-Q 1 [Concomitant]
  10. MINERAL SUPPLEMENT [Concomitant]

REACTIONS (2)
  - Rash [None]
  - Eye swelling [None]
